FAERS Safety Report 6706446-0 (Version None)
Quarter: 2010Q2

REPORT INFORMATION
  Report Type: 
  Country: None (occurrence: None)
  Receive Date: 20100503
  Receipt Date: 20100421
  Transmission Date: 20101027
  Serious: Yes (Hospitalization)
  Sender: FDA-Public Use
  Company Number: US-PFIZER INC-2010050738

PATIENT
  Sex: Female
  Weight: 73.016 kg

DRUGS (14)
  1. DETROL LA [Suspect]
     Indication: URINARY INCONTINENCE
     Dosage: 04 MG, 1X/DAY
     Route: 048
     Dates: start: 20091009
  2. ADVIL LIQUI-GELS [Suspect]
     Indication: PAIN
     Dosage: UNK MG, UNK
     Route: 048
  3. LEVOTHYROXINE [Concomitant]
     Indication: THYROID DISORDER
     Dosage: 100 UG, 1X/DAY
     Route: 048
  4. PRILOSEC [Concomitant]
     Dosage: UNK
     Route: 048
  5. ZESTRIL [Concomitant]
     Dosage: UNK MG, 1X/DAY
     Route: 048
  6. IRON [Concomitant]
     Dosage: UNK
     Route: 048
  7. OS-CAL [Concomitant]
     Dosage: UNK
     Route: 048
  8. VITAMIN D [Concomitant]
     Dosage: UNK
  9. CENTRUM SILVER [Concomitant]
     Dosage: UNK MG, 1X/DAY
     Route: 048
  10. PROCARDIA [Concomitant]
     Indication: ARRHYTHMIA PROPHYLAXIS
     Dosage: UNK MG, UNK
     Route: 048
  11. LUMIGAN [Concomitant]
     Indication: OCULAR HYPERTENSION
     Dosage: UNK
     Route: 047
  12. TRAVATAN [Concomitant]
     Indication: OCULAR HYPERTENSION
     Dosage: UNK
     Route: 047
  13. TYLENOL-500 [Concomitant]
     Indication: PAIN
     Dosage: UNK
     Route: 048
  14. HYDROCHLOROTHIAZIDE [Concomitant]
     Indication: OEDEMA PERIPHERAL
     Dosage: UNK

REACTIONS (1)
  - GASTRIC ULCER [None]
